FAERS Safety Report 4925154-X (Version None)
Quarter: 2006Q1

REPORT INFORMATION
  Report Type: 
  Country: None (occurrence: None)
  Receive Date: 20060228
  Receipt Date: 20051212
  Transmission Date: 20060701
  Serious: No
  Sender: FDA-Public Use
  Company Number: US-GLAXOSMITHKLINE-A0585483A

PATIENT
  Age: 74 Year
  Sex: Male

DRUGS (8)
  1. AVODART [Suspect]
     Indication: BENIGN PROSTATIC HYPERPLASIA
     Dosage: .5MG PER DAY
     Route: 048
  2. VITORIN [Concomitant]
  3. NIFEDIPINE [Concomitant]
  4. TOPROL-XL [Concomitant]
  5. ASPIRIN [Concomitant]
  6. ANAPRIL [Concomitant]
  7. DETROL [Concomitant]
  8. ZOLOFT [Concomitant]

REACTIONS (1)
  - INSOMNIA [None]
